FAERS Safety Report 8824705 (Version 2)
Quarter: 2012Q4

REPORT INFORMATION
  Report Type: 
  Country: US (occurrence: US)
  Receive Date: 20121004
  Receipt Date: 20121113
  Transmission Date: 20130627
  Serious: No
  Sender: FDA-Public Use
  Company Number: US-INCYTE CORPORATION-2012IN001907

PATIENT
  Age: 69 None
  Sex: Male

DRUGS (7)
  1. JAKAFI [Suspect]
     Indication: MYELOFIBROSIS
     Dosage: 20 mg, bid
     Route: 048
     Dates: start: 20120821, end: 20120925
  2. JAKAFI [Suspect]
     Dosage: 25 mg, bid
     Route: 048
     Dates: start: 20120926
  3. ASPIRIN [Concomitant]
     Dosage: 81 mg, UNK
  4. ALLOPURINOL [Concomitant]
  5. OMEPRAZOLE [Concomitant]
  6. MULTIVITAMINS [Concomitant]
  7. FISH OIL [Concomitant]

REACTIONS (3)
  - Rash [Unknown]
  - Haemoglobin decreased [Unknown]
  - Contusion [Unknown]
